FAERS Safety Report 23518259 (Version 1)
Quarter: 2024Q1

REPORT INFORMATION
  Report Type: Spontaneous
  Country: US (occurrence: None)
  Receive Date: 20240213
  Receipt Date: 20240213
  Transmission Date: 20240410
  Serious: Yes (Other)
  Sender: FDA-Public Use
  Company Number: None

PATIENT
  Age: 64 Year
  Sex: Female
  Weight: 44.1 kg

DRUGS (18)
  1. TYMLOS [Suspect]
     Active Substance: ABALOPARATIDE
     Indication: Osteoporosis
     Dosage: OTHER QUANTITY : 80 MCG;?FREQUENCY : AT BEDTIME;?
     Route: 058
     Dates: start: 20240210, end: 20240213
  2. SYNTHROID [Concomitant]
     Active Substance: LEVOTHYROXINE SODIUM
  3. ZYRTEC [Concomitant]
     Active Substance: CETIRIZINE HYDROCHLORIDE
  4. FLONASE [Concomitant]
     Active Substance: FLUTICASONE PROPIONATE
  5. PROLIA [Concomitant]
     Active Substance: DENOSUMAB
  6. estrogen cream [Concomitant]
  7. RESTASIS [Concomitant]
     Active Substance: CYCLOSPORINE
  8. Alive womens multivitamin mineral [Concomitant]
  9. VITAMIN D NOS [Concomitant]
     Active Substance: VITAMIN D NOS
  10. CALCIUM [Concomitant]
     Active Substance: CALCIUM
  11. VITAMIN C [Concomitant]
     Active Substance: ASCORBIC ACID
  12. CRANBERRY [Concomitant]
     Active Substance: CRANBERRY
  13. peptic soothe [Concomitant]
  14. COENZYME Q10 [Concomitant]
     Active Substance: DIETARY SUPPLEMENT\UBIDECARENONE
  15. HYALURONIC ACID [Concomitant]
     Active Substance: HYALURONIC ACID
  16. OCUVITE [Concomitant]
     Active Substance: VITAMINS
  17. PEPCID [Concomitant]
     Active Substance: FAMOTIDINE
  18. SUDAFED [Concomitant]
     Active Substance: PSEUDOEPHEDRINE HYDROCHLORIDE

REACTIONS (4)
  - Hyperhidrosis [None]
  - Rash [None]
  - Vomiting [None]
  - Dizziness [None]

NARRATIVE: CASE EVENT DATE: 20240213
